FAERS Safety Report 6032947-7 (Version None)
Quarter: 2009Q1

REPORT INFORMATION
  Report Type: 
  Country: None (occurrence: None)
  Receive Date: 20090105
  Receipt Date: 20080320
  Transmission Date: 20090719
  Serious: Yes (Hospitalization)
  Sender: FDA-Public Use
  Company Number: US-000486

PATIENT
  Age: 41 Year
  Sex: Male

DRUGS (2)
  1. PROHANCE [Suspect]
     Indication: MULTIPLE SCLEROSIS
     Dosage: 20ML QD INTRAVENOUS
     Route: 042
     Dates: start: 20080320, end: 20080320
  2. PROHANCE [Suspect]
     Indication: NUCLEAR MAGNETIC RESONANCE IMAGING BRAIN
     Dosage: 20ML QD INTRAVENOUS
     Route: 042
     Dates: start: 20080320, end: 20080320

REACTIONS (1)
  - HYPERSENSITIVITY [None]
